FAERS Safety Report 4279983-9 (Version None)
Quarter: 2004Q1

REPORT INFORMATION
  Report Type: 
  Country: None (occurrence: None)
  Receive Date: 20040126
  Receipt Date: 20040120
  Transmission Date: 20041129
  Serious: Yes (Hospitalization)
  Sender: FDA-Public Use
  Company Number: 200410047BNE

PATIENT
  Age: 80 Year
  Sex: Male

DRUGS (5)
  1. ASPIRIN [Suspect]
     Indication: MYOCARDIAL INFARCTION
     Dosage: 75 MG, TOTAL DAILY, ORAL
     Route: 048
     Dates: end: 20031130
  2. MADOPAR [Concomitant]
  3. FRUSEMIDE [Concomitant]
  4. IMDUR [Concomitant]
  5. VITAMIN B-12 [Concomitant]

REACTIONS (2)
  - GASTROINTESTINAL HAEMORRHAGE [None]
  - NORMOCHROMIC NORMOCYTIC ANAEMIA [None]
